FAERS Safety Report 8097170 (Version 2)
Quarter: 2014Q2

REPORT INFORMATION
  Report Type: Spontaneous
  Country: US (occurrence: US)
  Receive Date: 20110819
  Receipt Date: 20140403
  Transmission Date: 20141212
  Serious: Yes (Other)
  Sender: FDA-Public Use
  Company Number: US-RANBAXY-2011US-46715

PATIENT
  Age: 34 Year
  Sex: Male

DRUGS (5)
  1. GABAPENTIN [Suspect]
     Indication: SOCIAL PHOBIA
     Dosage: 200 MG, EVERY NIGHT
     Route: 065
  2. GABAPENTIN [Suspect]
     Indication: SOCIAL PHOBIA
     Dosage: 300 MG, EVERY NIGHT
     Route: 065
  3. DULOXETINE [Concomitant]
     Indication: PRODUCT USED FOR UNKNOWN INDICATION
     Dosage: 60 MG, BID
     Route: 065
  4. BUPROPION XL [Concomitant]
     Indication: PRODUCT USED FOR UNKNOWN INDICATION
     Dosage: 300 MG, EVERY MORNING
     Route: 065
  5. BUPROPION SR [Concomitant]
     Indication: PRODUCT USED FOR UNKNOWN INDICATION
     Dosage: 100 MG, DAILY
     Route: 065

REACTIONS (2)
  - Sexual dysfunction [Recovered/Resolved]
  - Off label use [Unknown]
